FAERS Safety Report 8003632-7 (Version None)
Quarter: 2011Q4

REPORT INFORMATION
  Report Type: 
  Country: None (occurrence: None)
  Receive Date: 20111222
  Receipt Date: 20111220
  Transmission Date: 20120403
  Serious: Yes (Hospitalization)
  Sender: FDA-Public Use
  Company Number: US-ACTELION-A-NJ2011-54838

PATIENT

DRUGS (1)
  1. TRACLEER [Suspect]
     Indication: PULMONARY ARTERIAL HYPERTENSION
     Dosage: UNK
     Route: 048
     Dates: start: 20080718

REACTIONS (5)
  - CONCOMITANT DISEASE AGGRAVATED [None]
  - CHEST PAIN [None]
  - SYNCOPE [None]
  - SOMNOLENCE [None]
  - DYSPNOEA [None]
